FAERS Safety Report 10700868 (Version 1)
Quarter: 2014Q4

REPORT INFORMATION
  Report Type: Spontaneous
  Country: US (occurrence: None)
  Receive Date: 20141224
  Receipt Date: 20141224
  Transmission Date: 20150529
  Serious: Yes (Hospitalization)
  Sender: FDA-Public Use
  Company Number: PHEH2014US001041

PATIENT
  Age: 51 Year
  Sex: Female
  Weight: 93.6 kg

DRUGS (25)
  1. ABILIFY [Concomitant]
     Active Substance: ARIPIPRAZOLE
  2. VENLAFAXINE [Concomitant]
     Active Substance: VENLAFAXINE HYDROCHLORIDE
  3. TRAMADOL [Concomitant]
     Active Substance: TRAMADOL
  4. BENZOTROPINE (BENZATROPINE MESILATE) [Concomitant]
  5. LORATADINE. [Concomitant]
     Active Substance: LORATADINE
  6. OMEPRAZOLE. [Concomitant]
     Active Substance: OMEPRAZOLE
  7. BACTRIM [Concomitant]
     Active Substance: SULFAMETHOXAZOLE\TRIMETHOPRIM
  8. LACTULOSE. [Concomitant]
     Active Substance: LACTULOSE
  9. MULTIVIT/VITAMINS NOS (VITAMINS NOS) [Concomitant]
  10. CLOZARIL [Suspect]
     Active Substance: CLOZAPINE
     Indication: SCHIZOPHRENIA
     Dosage: 800 MG, (100 MG QAM AND 700 MG QHS),ORAL
     Route: 048
     Dates: end: 20140104
  11. HALDOL DECANOATE [Concomitant]
     Active Substance: HALOPERIDOL DECANOATE
  12. MONTELUKAST [Concomitant]
     Active Substance: MONTELUKAST SODIUM
  13. ALBUTEROL (SALBUTAMOL) [Concomitant]
     Active Substance: ALBUTEROL
  14. HYDROXYZINE (HYDROXYZINE) [Concomitant]
     Active Substance: HYDROXYZINE HYDROCHLORIDE
  15. FLUTICASONE [Concomitant]
     Active Substance: FLUTICASONE\FLUTICASONE PROPIONATE
  16. REMERON [Concomitant]
     Active Substance: MIRTAZAPINE
  17. LOPERAMIDE [Concomitant]
     Active Substance: LOPERAMIDE
  18. MILK OF MAGNESIA (MAGNESIUM HYDROXIDE) [Concomitant]
  19. ALDACTONE [Concomitant]
     Active Substance: SPIRONOLACTONE
  20. NORCO (HYDROCODONE BITARTRATE, PARACETAMOL) [Concomitant]
  21. LEVOTHYROXINE [Concomitant]
     Active Substance: LEVOTHYROXINE
  22. CYCLOBENZAPRINE [Concomitant]
     Active Substance: CYCLOBENZAPRINE
  23. LORAZEPAM. [Concomitant]
     Active Substance: LORAZEPAM
  24. ASPIRIN (ACETYLSALICYCLIC ACID) [Concomitant]
     Active Substance: ASPIRIN
  25. PHENYTOIN. [Concomitant]
     Active Substance: PHENYTOIN

REACTIONS (10)
  - Intestinal dilatation [None]
  - Abdominal pain [None]
  - Abdominal distension [None]
  - Constipation [None]
  - Nausea [None]
  - Faecal vomiting [None]
  - Gastrointestinal motility disorder [None]
  - Intestinal obstruction [None]
  - Ileus [None]
  - Vomiting [None]

NARRATIVE: CASE EVENT DATE: 20131217
